FAERS Safety Report 8383441-X (Version None)
Quarter: 2012Q2

REPORT INFORMATION
  Report Type: 
  Country: None (occurrence: None)
  Receive Date: 20120522
  Receipt Date: 20120331
  Transmission Date: 20120825
  Serious: Yes (Disabling, Other)
  Sender: FDA-Public Use
  Company Number: 2012P1011580

PATIENT
  Age: 84 Year
  Sex: Male
  Weight: 77.1115 kg

DRUGS (26)
  1. SAW PALMETTO [Concomitant]
  2. ZINC SULFATE [Concomitant]
  3. SIMVASTATIN [Concomitant]
  4. CO-Q10 [Concomitant]
  5. CALCIUM [Concomitant]
  6. MAGNESIUM [Concomitant]
  7. LISINOPRIL [Concomitant]
  8. FISH OIL [Concomitant]
  9. FINASTERIDE [Concomitant]
  10. ASPIRIN [Concomitant]
  11. VITAMIN D [Concomitant]
  12. METHYLPREDNISOLONE 4MG TAB [Suspect]
     Indication: MYRINGITIS
     Dosage: 24 MG; X1, 8 MG; AM, 8 MG; NOON, 4 MG; HS, 4 MG; QID
     Dates: start: 20120330
  13. METHYLPREDNISOLONE 4MG TAB [Suspect]
     Indication: MYRINGITIS
     Dosage: 24 MG; X1, 8 MG; AM, 8 MG; NOON, 4 MG; HS, 4 MG; QID
     Dates: start: 20120329, end: 20120329
  14. METHYLPREDNISOLONE 4MG TAB [Suspect]
     Indication: MYRINGITIS
     Dosage: 24 MG; X1, 8 MG; AM, 8 MG; NOON, 4 MG; HS, 4 MG; QID
     Dates: start: 20120328, end: 20120328
  15. METHYLPREDNISOLONE 4MG TAB [Suspect]
     Indication: MYRINGITIS
     Dosage: 24 MG; X1, 8 MG; AM, 8 MG; NOON, 4 MG; HS, 4 MG; QID
     Dates: start: 20120329, end: 20120329
  16. METHYLPREDNISOLONE 4MG TAB [Suspect]
     Indication: MYRINGITIS
     Dosage: 24 MG; X1, 8 MG; AM, 8 MG; NOON, 4 MG; HS, 4 MG; QID
     Dates: start: 20120329, end: 20120329
  17. VITAMIN E [Concomitant]
  18. MULTI-VITAMIN [Concomitant]
  19. CHROMIUM CHLORIDE [Concomitant]
  20. VITAMIN C [Concomitant]
  21. GARLIC [Concomitant]
  22. BIOTIN [Concomitant]
  23. LUTEIN [Concomitant]
  24. HUMALOG [Concomitant]
  25. ACIDOPHILUS PROBIOTIC [Concomitant]
  26. CHONDROITIN SULFATE [Concomitant]

REACTIONS (2)
  - BLOOD GLUCOSE INCREASED [None]
  - DRUG INEFFECTIVE [None]
